FAERS Safety Report 11797001 (Version 1)
Quarter: 2015Q4

REPORT INFORMATION
  Report Type: Spontaneous
  Country: US (occurrence: None)
  Receive Date: 20151202
  Receipt Date: 20151202
  Transmission Date: 20160305
  Serious: No
  Sender: FDA-Public Use
  Company Number: None

PATIENT
  Sex: Female

DRUGS (1)
  1. HUMIRA [Suspect]
     Active Substance: ADALIMUMAB
     Indication: MALAISE
     Dosage: 40MG EVERY 2 WEEKS  SUBCUTANEOUSLY
     Route: 058
     Dates: start: 20140905, end: 201511

REACTIONS (2)
  - Fungal infection [None]
  - Pneumonia [None]
